FAERS Safety Report 4389168-3 (Version None)
Quarter: 2004Q2

REPORT INFORMATION
  Report Type: 
  Country: None (occurrence: None)
  Receive Date: 20040630
  Receipt Date: 20040617
  Transmission Date: 20050107
  Serious: Yes (Hospitalization)
  Sender: FDA-Public Use
  Company Number: GBR-2004-0001144

PATIENT
  Sex: Female
  Weight: 60 kg

DRUGS (5)
  1. OXYCONTIN [Suspect]
     Indication: POST PROCEDURAL PAIN
     Dosage: 1 MG, BID, ORAL
     Route: 048
     Dates: start: 20040101, end: 20040101
  2. OXYNORM (OXYCODONE HYDROCHLORIDE) UNKNOWN [Suspect]
     Indication: POST PROCEDURAL PAIN
     Dosage: 5 MG, DAILY, ORAL
     Route: 048
     Dates: start: 20040101, end: 20040101
  3. ACETAMINOPHEN [Concomitant]
  4. NSAIDS [Concomitant]
  5. NALOXONE [Concomitant]

REACTIONS (2)
  - PULMONARY OEDEMA [None]
  - RESPIRATORY DEPRESSION [None]
